FAERS Safety Report 18975088 (Version 2)
Quarter: 2021Q1

REPORT INFORMATION
  Report Type: Spontaneous
  Country: JP (occurrence: JP)
  Receive Date: 20210305
  Receipt Date: 20210317
  Transmission Date: 20210420
  Serious: Yes (Other)
  Sender: FDA-Public Use
  Company Number: JP-INSUD PHARMA-2102JP00207

PATIENT

DRUGS (1)
  1. TESTOSTERONE. [Suspect]
     Active Substance: TESTOSTERONE
     Indication: GENDER DYSPHORIA
     Dosage: 125 MG ONCE EVERY 2?3 WEEKS
     Route: 065

REACTIONS (2)
  - Invasive ductal breast carcinoma [Recovered/Resolved]
  - Mass [Recovered/Resolved]
